FAERS Safety Report 6005522-8 (Version None)
Quarter: 2008Q4

REPORT INFORMATION
  Report Type: 
  Country: None (occurrence: None)
  Receive Date: 20081216
  Receipt Date: 20081216
  Transmission Date: 20090506
  Serious: Yes (Other)
  Sender: FDA-Public Use
  Company Number: None

PATIENT
  Sex: Female
  Weight: 61.36 kg

DRUGS (1)
  1. CEFAZOLIN [Suspect]
     Indication: ESCHERICHIA URINARY TRACT INFECTION
     Dates: start: 20081117, end: 20081119

REACTIONS (2)
  - BACTERIA BLOOD IDENTIFIED [None]
  - WHITE BLOOD CELL COUNT DECREASED [None]
